FAERS Safety Report 25426899 (Version 1)
Quarter: 2025Q2

REPORT INFORMATION
  Report Type: Spontaneous
  Country: CA (occurrence: CA)
  Receive Date: 20250612
  Receipt Date: 20250612
  Transmission Date: 20250716
  Serious: Yes (Life-Threatening, Hospitalization, Other)
  Sender: RANBAXY
  Company Number: CA-SUN PHARMACEUTICAL INDUSTRIES LTD-2025R1-510299

PATIENT
  Age: 33 Year
  Sex: Male
  Weight: 65 kg

DRUGS (1)
  1. CAFFEINE [Suspect]
     Active Substance: CAFFEINE
     Indication: Product used for unknown indication
     Route: 048

REACTIONS (7)
  - Cardiac arrest [Unknown]
  - Haemodynamic instability [Unknown]
  - Intentional overdose [Unknown]
  - Pulseless electrical activity [Unknown]
  - Sinus tachycardia [Unknown]
  - Seizure [Unknown]
  - Ventricular tachycardia [Unknown]
